FAERS Safety Report 16562011 (Version 1)
Quarter: 2019Q3

REPORT INFORMATION
  Report Type: Spontaneous
  Country: US (occurrence: US)
  Receive Date: 20190711
  Receipt Date: 20190711
  Transmission Date: 20191004
  Serious: Yes (Life-Threatening, Hospitalization, Other)
  Sender: FDA-Public Use
  Company Number: US-BEXIMCO-2019BEX00031

PATIENT
  Age: 60 Year
  Sex: Female

DRUGS (6)
  1. ACETAZOLAMIDE. [Concomitant]
     Active Substance: ACETAZOLAMIDE
     Route: 065
  2. METFORMIN HYDROCHLORIDE. [Suspect]
     Active Substance: METFORMIN HYDROCHLORIDE
     Indication: DIABETES MELLITUS
     Dosage: UNK
     Route: 065
  3. INSULIN GLARGINE [Concomitant]
     Active Substance: INSULIN GLARGINE
     Route: 065
  4. AMLODIPINE [Concomitant]
     Active Substance: AMLODIPINE BESYLATE
     Route: 065
  5. LISINOPRIL. [Concomitant]
     Active Substance: LISINOPRIL
     Route: 065
  6. LOVASTATIN. [Concomitant]
     Active Substance: LOVASTATIN
     Route: 065

REACTIONS (11)
  - Pericardial effusion [Recovered/Resolved]
  - Atrial fibrillation [Recovered/Resolved]
  - Lactic acidosis [Recovered/Resolved]
  - Pulseless electrical activity [Recovered/Resolved]
  - Renal impairment [Recovered/Resolved]
  - Retroperitoneal oedema [Recovered/Resolved]
  - Pancreatic disorder [Recovered/Resolved]
  - Gastrointestinal oedema [Recovered/Resolved]
  - Toxicity to various agents [Recovered/Resolved]
  - Gallbladder oedema [Recovered/Resolved]
  - Bradycardia [Recovered/Resolved]
